FAERS Safety Report 7521498-6 (Version None)
Quarter: 2011Q2

REPORT INFORMATION
  Report Type: 
  Country: None (occurrence: None)
  Receive Date: 20110603
  Receipt Date: 20110524
  Transmission Date: 20111010
  Serious: Yes (Other)
  Sender: FDA-Public Use
  Company Number: US-JNJFOC-20110512755

PATIENT
  Sex: Female

DRUGS (1)
  1. DOXORUBICIN HCL [Suspect]
     Indication: OVARIAN CANCER
     Route: 042
     Dates: start: 20110101, end: 20110502

REACTIONS (2)
  - CARBOHYDRATE ANTIGEN 125 INCREASED [None]
  - POSITRON EMISSION TOMOGRAM ABNORMAL [None]
